FAERS Safety Report 10429490 (Version 1)
Quarter: 2014Q3

REPORT INFORMATION
  Report Type: Spontaneous
  Country: US (occurrence: None)
  Receive Date: 20140725
  Receipt Date: 20140725
  Transmission Date: 20150326
  Serious: Yes (Hospitalization)
  Sender: FDA-Public Use
  Company Number: 163-50794-13053228

PATIENT
  Age: 77 Year
  Sex: Male
  Weight: 97.8 kg

DRUGS (1)
  1. VIDAZA [Suspect]
     Active Substance: AZACITIDINE
     Indication: MYELODYSPLASTIC SYNDROME
     Dosage: TEMPORARILY INTERRUPTED; QD X 5 DAYS, Q 5 WEEKS?
     Route: 058
     Dates: start: 201304

REACTIONS (2)
  - Neutrophil count decreased [None]
  - Clostridium difficile colitis [None]

NARRATIVE: CASE EVENT DATE: 2013
